FAERS Safety Report 10272305 (Version 1)
Quarter: 2014Q2

REPORT INFORMATION
  Report Type: Spontaneous
  Country: US (occurrence: None)
  Receive Date: 20140627
  Receipt Date: 20140627
  Transmission Date: 20141212
  Serious: No
  Sender: FDA-Public Use
  Company Number: None

PATIENT
  Age: 61 Year
  Sex: Female

DRUGS (1)
  1. HUMIRA 40MG ABBVIE [Suspect]
     Indication: PSORIASIS
     Dosage: SUB-Q
     Dates: start: 201402

REACTIONS (3)
  - Depressed mood [None]
  - Homicidal ideation [None]
  - Abnormal dreams [None]
